FAERS Safety Report 9454117 (Version 1)
Quarter: 2013Q3

REPORT INFORMATION
  Report Type: Report from Study
  Country: US (occurrence: US)
  Receive Date: 20130812
  Receipt Date: 20130812
  Transmission Date: 20140515
  Serious: Yes (Hospitalization, Other)
  Sender: FDA-Public Use
  Company Number: US-ABBOTT-13P-163-1128946-00

PATIENT
  Age: 52 Year
  Sex: Male
  Weight: 115.77 kg

DRUGS (14)
  1. SIMCOR [Suspect]
     Indication: BLOOD CHOLESTEROL INCREASED
     Dosage: 1000/40 MG AT BEDTIME
  2. PRADAXA [Suspect]
     Indication: PRODUCT USED FOR UNKNOWN INDICATION
  3. TRICOR [Concomitant]
     Indication: PRODUCT USED FOR UNKNOWN INDICATION
  4. FLOMAX [Concomitant]
     Indication: PRODUCT USED FOR UNKNOWN INDICATION
  5. NOVOLOG [Concomitant]
     Indication: PRODUCT USED FOR UNKNOWN INDICATION
  6. LEVEMIR [Concomitant]
     Indication: PRODUCT USED FOR UNKNOWN INDICATION
  7. BYSTOLIC [Concomitant]
     Indication: PRODUCT USED FOR UNKNOWN INDICATION
  8. NEURONTIN [Concomitant]
     Indication: PRODUCT USED FOR UNKNOWN INDICATION
  9. AMBIEN [Concomitant]
     Indication: PRODUCT USED FOR UNKNOWN INDICATION
  10. CYMBALTA [Concomitant]
     Indication: PRODUCT USED FOR UNKNOWN INDICATION
  11. RAMIPRIL [Concomitant]
     Indication: PRODUCT USED FOR UNKNOWN INDICATION
  12. XORELTO [Concomitant]
     Indication: PRODUCT USED FOR UNKNOWN INDICATION
  13. LORTAB [Concomitant]
     Indication: PRODUCT USED FOR UNKNOWN INDICATION
  14. LASIX [Concomitant]
     Indication: PRODUCT USED FOR UNKNOWN INDICATION

REACTIONS (8)
  - Renal cancer [Recovered/Resolved]
  - Gastrointestinal haemorrhage [Recovered/Resolved]
  - Venous insufficiency [Recovered/Resolved]
  - Atrial fibrillation [Recovered/Resolved]
  - Paraesthesia [Recovered/Resolved]
  - Pruritus [Recovered/Resolved]
  - Burning sensation [Recovered/Resolved]
  - Red blood cell count decreased [Recovering/Resolving]
